FAERS Safety Report 18039227 (Version 1)
Quarter: 2020Q3

REPORT INFORMATION
  Report Type: Spontaneous
  Country: ES (occurrence: ES)
  Receive Date: 20200718
  Receipt Date: 20200718
  Transmission Date: 20201103
  Serious: Yes (Hospitalization)
  Sender: FDA-Public Use
  Company Number: ES-CADILA HEALTHCARE LIMITED-ES-ZYDUS-027983

PATIENT

DRUGS (8)
  1. ROSUVASTATIN. [Concomitant]
     Active Substance: ROSUVASTATIN
     Dosage: 10 MG 0?0?1
     Route: 048
     Dates: start: 20100302
  2. SERTRALINE [Concomitant]
     Active Substance: SERTRALINE HYDROCHLORIDE
     Dosage: 0?1?0
     Route: 048
     Dates: start: 20170217
  3. INDACATEROL [Suspect]
     Active Substance: INDACATEROL
     Indication: PRODUCT USED FOR UNKNOWN INDICATION
     Route: 055
     Dates: start: 20170217, end: 20170617
  4. FESOTERODINE [Concomitant]
     Active Substance: FESOTERODINE
     Dosage: 1?0?0
     Route: 048
     Dates: start: 20150310
  5. OMEPRAZOLE. [Concomitant]
     Active Substance: OMEPRAZOLE
     Dosage: 20 MG DIA
     Route: 048
     Dates: start: 20170217
  6. TAMSULOSIN [Concomitant]
     Active Substance: TAMSULOSIN
     Dosage: 1?0?0
     Route: 048
     Dates: start: 20100302
  7. CARVEDILOL. [Suspect]
     Active Substance: CARVEDILOL
     Indication: PRODUCT USED FOR UNKNOWN INDICATION
     Dosage: 12.5 MILLIGRAM,(INTERVAL :12 HOURS)
     Route: 048
     Dates: start: 20100302
  8. ADIRO [Concomitant]
     Active Substance: ASPIRIN
     Dosage: 300 MILLIGRAM,1?0?0
     Route: 048
     Dates: start: 20150310

REACTIONS (1)
  - Hyperkalaemia [Recovered/Resolved]

NARRATIVE: CASE EVENT DATE: 20170617
